FAERS Safety Report 8243959-7 (Version None)
Quarter: 2012Q1

REPORT INFORMATION
  Report Type: 
  Country: None (occurrence: None)
  Receive Date: 20120329
  Receipt Date: 20111121
  Transmission Date: 20120608
  Serious: No
  Sender: FDA-Public Use
  Company Number: US-MYLANLABS-2011S1020479

PATIENT
  Age: 45 Year
  Sex: Female
  Weight: 89.81 kg

DRUGS (1)
  1. ESTRADIOL [Suspect]
     Indication: MENOPAUSE
     Dosage: QW
     Route: 062
     Dates: start: 20110920, end: 20111003

REACTIONS (5)
  - APPLICATION SITE ULCER [None]
  - HEADACHE [None]
  - APPLICATION SITE VESICLES [None]
  - APPLICATION SITE DRYNESS [None]
  - APPLICATION SITE DISCOLOURATION [None]
